FAERS Safety Report 5925443-6 (Version None)
Quarter: 2008Q4

REPORT INFORMATION
  Report Type: 
  Country: None (occurrence: None)
  Receive Date: 20081021
  Receipt Date: 20081015
  Transmission Date: 20090506
  Serious: Yes (Hospitalization)
  Sender: FDA-Public Use
  Company Number: US-MERCK-0809USA00734

PATIENT
  Age: 64 Year
  Sex: Female

DRUGS (4)
  1. FOSAMAX [Suspect]
     Indication: OSTEOPOROSIS
     Route: 048
     Dates: start: 19940101, end: 20050101
  2. LIPITOR [Concomitant]
     Route: 065
  3. COZAAR [Concomitant]
     Route: 048
  4. CALCIUM (UNSPECIFIED) [Concomitant]
     Route: 065

REACTIONS (1)
  - ARTHROPATHY [None]
